FAERS Safety Report 7716554-3 (Version None)
Quarter: 2011Q3

REPORT INFORMATION
  Report Type: 
  Country: None (occurrence: None)
  Receive Date: 20110829
  Receipt Date: 20110819
  Transmission Date: 20111222
  Serious: Yes (Death)
  Sender: FDA-Public Use
  Company Number: DE-GENZYME-CLOF-1001509

PATIENT
  Sex: Male
  Weight: 33 kg

DRUGS (6)
  1. EVOLTRA [Suspect]
     Dosage: 30 MG QDX4
     Route: 042
     Dates: start: 20110110, end: 20110113
  2. ETOPOSIDE [Suspect]
     Indication: ACUTE LYMPHOCYTIC LEUKAEMIA
     Dosage: CYCLE 1
     Route: 065
  3. EVOLTRA [Suspect]
     Indication: ACUTE LYMPHOCYTIC LEUKAEMIA
     Dosage: 40 MG, QDX5
     Route: 042
     Dates: start: 20101206, end: 20101210
  4. ETOPOSIDE [Suspect]
     Dosage: CYCLE 2
     Route: 065
  5. CYCLOPHOSPHAMIDE [Suspect]
     Dosage: CYCLE 2
     Route: 065
  6. CYCLOPHOSPHAMIDE [Suspect]
     Indication: ACUTE LYMPHOCYTIC LEUKAEMIA
     Dosage: CYCLE 1
     Route: 065

REACTIONS (2)
  - BONE MARROW FAILURE [None]
  - ADENOVIRUS INFECTION [None]
